FAERS Safety Report 8251258-2 (Version None)
Quarter: 2012Q1

REPORT INFORMATION
  Report Type: 
  Country: None (occurrence: None)
  Receive Date: 20120328
  Receipt Date: 20120313
  Transmission Date: 20120608
  Serious: Yes (Death, Hospitalization, Other)
  Sender: FDA-Public Use
  Company Number: 2012HGS-003357

PATIENT
  Age: 34 Year
  Sex: Female
  Weight: 61.3 kg

DRUGS (8)
  1. PRENISOLONE (PREDNISOLONE) (PREDNISOLONE) [Concomitant]
  2. SILDENAFIL (SILDENAFIL) (SILDENAFIL) [Concomitant]
  3. ACETAMINOPHEN [Concomitant]
  4. CALCIUM CARBONATE (CALCIUM CARBONATE) (CALCIUM CARBONATE) [Concomitant]
  5. BELIMUMAB [Suspect]
     Indication: SYSTEMIC LUPUS ERYTHEMATOSUS
     Dosage: 10 MG/KG, 1 IN 28 D, INTRAVENOUS DRIP
     Route: 041
     Dates: start: 20081229
  6. OMEPRAZOLE [Concomitant]
  7. ENALAPRIL MALEATE [Concomitant]
  8. CALCITRIOL (CALCITRIOL) (CALCITRIOL) [Concomitant]

REACTIONS (14)
  - CARDIOGENIC SHOCK [None]
  - TIBIA FRACTURE [None]
  - PROCEDURAL HYPOTENSION [None]
  - THROMBOCYTOPENIA [None]
  - HAEMOLYTIC ANAEMIA [None]
  - HYPOTENSION [None]
  - FOOT FRACTURE [None]
  - LOWER LIMB FRACTURE [None]
  - OXYGEN SATURATION DECREASED [None]
  - TACHYCARDIA [None]
  - RESPIRATORY DISTRESS [None]
  - INJURY [None]
  - FALL [None]
  - METABOLIC ACIDOSIS [None]
